FAERS Safety Report 8369114-8 (Version None)
Quarter: 2012Q2

REPORT INFORMATION
  Report Type: 
  Country: None (occurrence: None)
  Receive Date: 20120518
  Receipt Date: 20120507
  Transmission Date: 20120825
  Serious: Yes (Hospitalization, Other)
  Sender: FDA-Public Use
  Company Number: CA-JNJFOC-20120113498

PATIENT
  Sex: Female
  Weight: 61 kg

DRUGS (11)
  1. ZOFRAN [Concomitant]
     Route: 065
  2. IMURAN [Concomitant]
     Route: 065
  3. LYRICA [Concomitant]
     Route: 065
  4. OXYCODONE HCL [Concomitant]
     Route: 065
  5. CESAMET [Concomitant]
     Route: 065
  6. PERINDOPRIL ERBUMINE [Concomitant]
     Route: 065
  7. MARIJUANA [Concomitant]
     Route: 065
  8. ADALAT [Concomitant]
     Route: 065
  9. REMICADE [Suspect]
     Indication: CROHN'S DISEASE
     Route: 042
     Dates: start: 20071029
  10. REMICADE [Suspect]
     Indication: PYODERMA GANGRENOSUM
     Route: 042
     Dates: start: 20071029
  11. WELLBUTRIN [Concomitant]
     Route: 065

REACTIONS (1)
  - RENAL FAILURE [None]
